FAERS Safety Report 8851059 (Version 1)
Quarter: 2012Q4

REPORT INFORMATION
  Report Type: 
  Country: US (occurrence: US)
  Receive Date: 20121019
  Receipt Date: 20121019
  Transmission Date: 20130627
  Serious: No
  Sender: FDA-Public Use
  Company Number: US-009507513-1209USA002667

PATIENT
  Sex: Male

DRUGS (2)
  1. PEG-INTRON [Suspect]
     Indication: HEPATITIS C
     Dosage: UNK
     Dates: start: 20030304, end: 20040206
  2. RIBAVIRIN [Suspect]
     Dosage: UNK
     Dates: start: 20030304, end: 20040206

REACTIONS (2)
  - Gastric disorder [Unknown]
  - Hepatitis C [Unknown]
